FAERS Safety Report 13349430 (Version 1)
Quarter: 2017Q1

REPORT INFORMATION
  Report Type: Spontaneous
  Country: HR (occurrence: HR)
  Receive Date: 20170320
  Receipt Date: 20170320
  Transmission Date: 20170428
  Serious: Yes (Hospitalization)
  Sender: FDA-Public Use
  Company Number: HR-ACCORD-049450

PATIENT
  Age: 80 Year
  Sex: Female

DRUGS (8)
  1. MORPHINE [Concomitant]
     Active Substance: MORPHINE
     Dosage: 3 TABLETS OF 3-METHYLMORPHINE
  2. PANTOPRAZOLE [Concomitant]
     Active Substance: PANTOPRAZOLE SODIUM
  3. CLONAZEPAM. [Concomitant]
     Active Substance: CLONAZEPAM
     Dosage: EVENING
  4. BUDESONIDE. [Concomitant]
     Active Substance: BUDESONIDE
  5. FORMOTEROL [Concomitant]
     Active Substance: FORMOTEROL
     Dosage: INHALER 320 MCG 1 PUFF TWICE A DAY
  6. MAPROTILINE [Concomitant]
     Active Substance: MAPROTILINE
  7. CLOPIDOGREL [Suspect]
     Active Substance: CLOPIDOGREL BISULFATE
     Indication: ANXIETY
  8. ROSUVASTATIN. [Interacting]
     Active Substance: ROSUVASTATIN
     Indication: ANXIETY

REACTIONS (2)
  - Drug interaction [Unknown]
  - Rhabdomyolysis [Recovering/Resolving]
